FAERS Safety Report 16790221 (Version 1)
Quarter: 2019Q4

REPORT INFORMATION
  Report Type: Spontaneous
  Country: US (occurrence: US)
  Receive Date: 20190909
  Receipt Date: 20190909
  Transmission Date: 20200122
  Serious: Yes (Other)
  Sender: FDA-Public Use
  Company Number: None

PATIENT
  Age: 68 Year
  Sex: Male
  Weight: 82.94 kg

DRUGS (4)
  1. CAPECITABINE. [Suspect]
     Active Substance: CAPECITABINE
     Indication: COLON CANCER
     Dosage: 1000 MG ORAL BID 14 D, 14 D OFF?
     Route: 048
     Dates: start: 20190516
  2. CAPECITABINE. [Suspect]
     Active Substance: CAPECITABINE
     Indication: GASTRIC CANCER
     Dosage: 150 MG ORAL BID 14 D, 14 D OFF?
     Route: 048
     Dates: start: 20190516
  3. CAPECITABINE. [Suspect]
     Active Substance: CAPECITABINE
     Indication: COLON CANCER
     Dosage: 150 MG ORAL BID 14 D, 14 D OFF?
     Route: 048
     Dates: start: 20190516
  4. CAPECITABINE. [Suspect]
     Active Substance: CAPECITABINE
     Indication: GASTRIC CANCER
     Dosage: 1000 MG ORAL BID 14 D, 14 D OFF?
     Route: 048
     Dates: start: 20190516

REACTIONS (3)
  - Therapeutic product effect decreased [None]
  - Dysphagia [None]
  - Oropharyngeal discomfort [None]
